FAERS Safety Report 21741879 (Version 1)
Quarter: 2022Q4

REPORT INFORMATION
  Report Type: Spontaneous
  Country: JP (occurrence: JP)
  Receive Date: 20221216
  Receipt Date: 20221216
  Transmission Date: 20230112
  Serious: Yes (Other)
  Sender: FDA-Public Use
  Company Number: JP-002147023-NVSC2022JP290125

PATIENT
  Age: 73 Year
  Sex: Female

DRUGS (2)
  1. PAZOPANIB [Suspect]
     Active Substance: PAZOPANIB
     Indication: Malignant fibrous histiocytoma
     Dosage: 800 MG, QD (INITIAL DOSE)
     Route: 048
  2. PAZOPANIB [Suspect]
     Active Substance: PAZOPANIB
     Indication: Metastases to heart

REACTIONS (3)
  - Pneumothorax [Recovered/Resolved]
  - Pneumothorax [Unknown]
  - Therapy partial responder [Unknown]
